FAERS Safety Report 20030274 (Version 2)
Quarter: 2021Q4

REPORT INFORMATION
  Report Type: Spontaneous
  Country: BR (occurrence: BR)
  Receive Date: 20211103
  Receipt Date: 20211109
  Transmission Date: 20220303
  Serious: Yes (Hospitalization)
  Sender: FDA-Public Use
  Company Number: BR-IGSA-BIG0016538

PATIENT
  Age: 71 Year
  Sex: Female
  Weight: 64 kg

DRUGS (4)
  1. FLEBOGAMMA DIF [Suspect]
     Active Substance: HUMAN IMMUNOGLOBULIN G
     Indication: Hypogammaglobulinaemia
     Dosage: 25 GRAM, TOTAL
     Route: 042
     Dates: start: 20210716, end: 20210716
  2. MORPHINE [Concomitant]
     Active Substance: MORPHINE
     Indication: Back pain
     Dosage: 1 MILLIGRAM
  3. DIPHENHYDRAMINE [Concomitant]
     Active Substance: DIPHENHYDRAMINE
     Indication: Premedication
     Dosage: 50 MILLIGRAM, QD
     Dates: start: 20210716, end: 20210716
  4. DIPYRONE [Concomitant]
     Active Substance: DIPYRONE
     Indication: Premedication
     Dosage: 1 GRAM, QD
     Dates: start: 20210716, end: 20210716

REACTIONS (6)
  - Bronchospasm [Recovered/Resolved]
  - Chills [Recovered/Resolved]
  - Oxygen saturation decreased [Recovered/Resolved]
  - Wheezing [Recovered/Resolved]
  - Dyspnoea [Recovered/Resolved]
  - Hypertension [Recovered/Resolved]

NARRATIVE: CASE EVENT DATE: 20210716
